FAERS Safety Report 7552834-2 (Version None)
Quarter: 2011Q2

REPORT INFORMATION
  Report Type: 
  Country: None (occurrence: None)
  Receive Date: 20110616
  Receipt Date: 20110614
  Transmission Date: 20111010
  Serious: Yes (Other)
  Sender: FDA-Public Use
  Company Number: CA-PFIZER INC-2011108140

PATIENT
  Age: 63 Year
  Sex: Female

DRUGS (7)
  1. LYRICA [Suspect]
     Indication: FIBROMYALGIA
     Dosage: 150 MG, 4X/DAY
     Route: 048
     Dates: end: 20110526
  2. SEROQUEL [Concomitant]
     Indication: BIPOLAR DISORDER
     Dosage: 100 MG, 1X/DAY AT BEDTIME
     Route: 048
     Dates: start: 20090310
  3. ABILIFY [Concomitant]
     Indication: BIPOLAR DISORDER
     Dosage: 2.5 MG, 1X/DAY IN THE MORNING
     Route: 048
     Dates: start: 20090310
  4. LITHIUM [Concomitant]
     Indication: BIPOLAR DISORDER
     Dosage: 600 MG, 2X/DAY (EVERY MORNING AND AT BEDTIME)
     Route: 048
  5. SEROQUEL [Concomitant]
     Indication: INSOMNIA
  6. CLOZAPINE [Concomitant]
     Indication: BIPOLAR DISORDER
     Dosage: 100 MG, 1X/DAY AT BEDTIME
     Route: 048
  7. VALPROATE SODIUM [Concomitant]
     Indication: BIPOLAR DISORDER
     Dosage: 1000 MG, 1X/DAY AT BEDTIME
     Route: 048

REACTIONS (2)
  - HALLUCINATION, AUDITORY [None]
  - HALLUCINATION, VISUAL [None]
